FAERS Safety Report 5218681-1 (Version None)
Quarter: 2007Q1

REPORT INFORMATION
  Report Type: 
  Country: None (occurrence: None)
  Receive Date: 20070122
  Receipt Date: 20060822
  Transmission Date: 20070707
  Serious: Yes (Other)
  Sender: FDA-Public Use
  Company Number: 2007BL000086

PATIENT
  Sex: Female

DRUGS (1)
  1. TROPICAMIDE [Suspect]

REACTIONS (1)
  - CONVULSION [None]
